FAERS Safety Report 11141163 (Version 1)
Quarter: 2015Q2

REPORT INFORMATION
  Report Type: Spontaneous
  Country: US (occurrence: None)
  Receive Date: 20150526
  Receipt Date: 20150526
  Transmission Date: 20150821
  Serious: Yes (Disabling)
  Sender: FDA-Public Use
  Company Number: None

PATIENT
  Age: 53 Year
  Sex: Female
  Weight: 89.36 kg

DRUGS (7)
  1. C [Concomitant]
  2. CLONAZEPAM. [Concomitant]
     Active Substance: CLONAZEPAM
  3. VITAMIN B12 [Concomitant]
     Active Substance: CYANOCOBALAMIN
  4. TRAZODONE [Concomitant]
     Active Substance: TRAZODONE HYDROCHLORIDE
  5. D3 [Concomitant]
     Active Substance: 25-HYDROXYCHOLECALCIFEROL, 5-TRANS-
  6. DULOXETINE HCL [Suspect]
     Active Substance: DULOXETINE HYDROCHLORIDE
     Indication: FIBROMYALGIA
     Route: 048
     Dates: start: 20150429, end: 20150522
  7. LANSOPRAZOLE DR [Concomitant]

REACTIONS (7)
  - Headache [None]
  - Anxiety [None]
  - Nausea [None]
  - Drug ineffective [None]
  - Neck pain [None]
  - Product substitution issue [None]
  - Musculoskeletal stiffness [None]

NARRATIVE: CASE EVENT DATE: 20150522
